FAERS Safety Report 7343323-9 (Version None)
Quarter: 2011Q1

REPORT INFORMATION
  Report Type: 
  Country: None (occurrence: None)
  Receive Date: 20110310
  Receipt Date: 20110301
  Transmission Date: 20110831
  Serious: Yes (Hospitalization)
  Sender: FDA-Public Use
  Company Number: SE-JNJFOC-20110301799

PATIENT
  Age: 4 Year
  Sex: Female

DRUGS (2)
  1. IPREN [Suspect]
     Indication: PRODUCT USED FOR UNKNOWN INDICATION
     Route: 054
  2. IPREN [Suspect]
     Route: 054

REACTIONS (3)
  - CIRCULATORY COLLAPSE [None]
  - SYNCOPE [None]
  - ANAPHYLACTIC REACTION [None]
